FAERS Safety Report 9858645 (Version 3)
Quarter: 2014Q3

REPORT INFORMATION
  Report Type: Spontaneous
  Country: US (occurrence: US)
  Receive Date: 20140131
  Receipt Date: 20140826
  Transmission Date: 20150326
  Serious: Yes (Hospitalization, Other)
  Sender: FDA-Public Use
  Company Number: US-009507513-1401USA012857

PATIENT
  Sex: Female
  Weight: 70.5 kg

DRUGS (1)
  1. NUVARING [Suspect]
     Active Substance: ETHINYL ESTRADIOL\ETONOGESTREL
     Dosage: UNK
     Route: 067
     Dates: start: 200606, end: 20111013

REACTIONS (7)
  - Speech disorder [Unknown]
  - Slow speech [Unknown]
  - Seizure like phenomena [Unknown]
  - Malaise [Unknown]
  - Cerebral infarction [Unknown]
  - Caesarean section [Recovered/Resolved]
  - Unintended pregnancy [Recovered/Resolved]

NARRATIVE: CASE EVENT DATE: 2010
